FAERS Safety Report 18272365 (Version 4)
Quarter: 2020Q4

REPORT INFORMATION
  Report Type: Spontaneous
  Country: US (occurrence: US)
  Receive Date: 20200916
  Receipt Date: 20201214
  Transmission Date: 20210113
  Serious: Yes (Other)
  Sender: FDA-Public Use
  Company Number: US-SA-2020SA242442

PATIENT

DRUGS (3)
  1. LANTUS SOLOSTAR [Suspect]
     Active Substance: INSULIN GLARGINE
     Indication: TYPE 1 DIABETES MELLITUS
     Dosage: 22 IU, QD
     Route: 065
  2. HUMALOG [Concomitant]
     Active Substance: INSULIN LISPRO
     Dosage: UNKNOWN
     Route: 065
  3. LANTUS SOLOSTAR [Suspect]
     Active Substance: INSULIN GLARGINE
     Dosage: 25-28 ON A SLIDING SCALE IN THE MORNING DEPENDING ON THE BLOOD SUGAR, QD
     Route: 065

REACTIONS (4)
  - Incorrect dose administered by device [Recovered/Resolved]
  - Device operational issue [Recovered/Resolved]
  - Diabetes mellitus inadequate control [Recovered/Resolved]
  - Aortic valve disease [Unknown]

NARRATIVE: CASE EVENT DATE: 2020
